FAERS Safety Report 17244109 (Version 1)
Quarter: 2020Q1

REPORT INFORMATION
  Report Type: Spontaneous
  Country: US (occurrence: US)
  Receive Date: 20200107
  Receipt Date: 20200107
  Transmission Date: 20200409
  Serious: No
  Sender: FDA-Public Use
  Company Number: US-AMNEAL PHARMACEUTICALS-2019-AMRX-02579

PATIENT
  Age: 4 Year
  Sex: Male
  Weight: 24.49 kg

DRUGS (2)
  1. GUANFACINE. [Suspect]
     Active Substance: GUANFACINE
     Dosage: 2X/DAY, HALF TABLET TWICE A DAY
     Route: 048
     Dates: start: 20191029, end: 2019
  2. GUANFACINE. [Suspect]
     Active Substance: GUANFACINE
     Indication: ATTENTION DEFICIT/HYPERACTIVITY DISORDER
     Dosage: 2X/DAY, HALF TABLET TWICE A DAY
     Route: 048
     Dates: start: 20191023, end: 201910

REACTIONS (1)
  - Excessive eye blinking [Recovered/Resolved]

NARRATIVE: CASE EVENT DATE: 201910
